FAERS Safety Report 5602412-7 (Version None)
Quarter: 2008Q1

REPORT INFORMATION
  Report Type: 
  Country: None (occurrence: None)
  Receive Date: 20080122
  Receipt Date: 20080110
  Transmission Date: 20080703
  Serious: Yes (Life-Threatening, Hospitalization)
  Sender: FDA-Public Use
  Company Number: MEDI-0006392

PATIENT
  Age: 5 Month
  Sex: Female

DRUGS (12)
  1. SYNAGIS [Suspect]
     Indication: DE LANGE'S SYNDROME
     Dosage: 55 MG, 1 IN 1 M, INTRAMUSCULAR; 50 MG, 1 IN 1 M, INTRAMUSCULAR; 50 MG, 1 IN 1 M, INTRAMUSCULAR
     Route: 030
     Dates: start: 20071103, end: 20071229
  2. SYNAGIS [Suspect]
     Indication: FOETAL GROWTH RETARDATION
     Dosage: 55 MG, 1 IN 1 M, INTRAMUSCULAR; 50 MG, 1 IN 1 M, INTRAMUSCULAR; 50 MG, 1 IN 1 M, INTRAMUSCULAR
     Route: 030
     Dates: start: 20071103, end: 20071229
  3. SYNAGIS [Suspect]
     Indication: PREMATURE BABY
     Dosage: 55 MG, 1 IN 1 M, INTRAMUSCULAR; 50 MG, 1 IN 1 M, INTRAMUSCULAR; 50 MG, 1 IN 1 M, INTRAMUSCULAR
     Route: 030
     Dates: start: 20071103, end: 20071229
  4. SYNAGIS [Suspect]
     Indication: DE LANGE'S SYNDROME
     Dosage: 55 MG, 1 IN 1 M, INTRAMUSCULAR; 50 MG, 1 IN 1 M, INTRAMUSCULAR; 50 MG, 1 IN 1 M, INTRAMUSCULAR
     Route: 030
     Dates: start: 20071103
  5. SYNAGIS [Suspect]
     Indication: FOETAL GROWTH RETARDATION
     Dosage: 55 MG, 1 IN 1 M, INTRAMUSCULAR; 50 MG, 1 IN 1 M, INTRAMUSCULAR; 50 MG, 1 IN 1 M, INTRAMUSCULAR
     Route: 030
     Dates: start: 20071103
  6. SYNAGIS [Suspect]
     Indication: PREMATURE BABY
     Dosage: 55 MG, 1 IN 1 M, INTRAMUSCULAR; 50 MG, 1 IN 1 M, INTRAMUSCULAR; 50 MG, 1 IN 1 M, INTRAMUSCULAR
     Route: 030
     Dates: start: 20071103
  7. SYNAGIS [Suspect]
     Indication: DE LANGE'S SYNDROME
     Dosage: 55 MG, 1 IN 1 M, INTRAMUSCULAR; 50 MG, 1 IN 1 M, INTRAMUSCULAR; 50 MG, 1 IN 1 M, INTRAMUSCULAR
     Route: 030
     Dates: start: 20071201
  8. SYNAGIS [Suspect]
     Indication: FOETAL GROWTH RETARDATION
     Dosage: 55 MG, 1 IN 1 M, INTRAMUSCULAR; 50 MG, 1 IN 1 M, INTRAMUSCULAR; 50 MG, 1 IN 1 M, INTRAMUSCULAR
     Route: 030
     Dates: start: 20071201
  9. SYNAGIS [Suspect]
     Indication: PREMATURE BABY
     Dosage: 55 MG, 1 IN 1 M, INTRAMUSCULAR; 50 MG, 1 IN 1 M, INTRAMUSCULAR; 50 MG, 1 IN 1 M, INTRAMUSCULAR
     Route: 030
     Dates: start: 20071201
  10. SYNAGIS [Suspect]
  11. SYNAGIS [Suspect]
  12. PREVACID [Concomitant]

REACTIONS (8)
  - FEEDING DISORDER [None]
  - HAEMOPHILUS INFECTION [None]
  - LETHARGY [None]
  - MORAXELLA INFECTION [None]
  - PALLOR [None]
  - PNEUMONIA RESPIRATORY SYNCYTIAL VIRAL [None]
  - RESPIRATORY FAILURE [None]
  - UPPER RESPIRATORY TRACT INFECTION [None]
